FAERS Safety Report 8536562-2 (Version None)
Quarter: 2012Q3

REPORT INFORMATION
  Report Type: 
  Country: None (occurrence: None)
  Receive Date: 20120725
  Receipt Date: 20120723
  Transmission Date: 20120928
  Serious: Yes (Hospitalization)
  Sender: FDA-Public Use
  Company Number: US-TEVA-346078USA

PATIENT
  Sex: Male

DRUGS (16)
  1. BIO D EMULSION [Concomitant]
     Dates: start: 20110630
  2. LENALIDOMIDE [Suspect]
     Dates: start: 20110714, end: 20120613
  3. FLUCONAZOLE [Concomitant]
     Dates: start: 20110811
  4. TREANDA [Suspect]
     Indication: MULTIPLE MYELOMA
     Dosage: DAYS 1-2
     Route: 042
     Dates: start: 20110714, end: 20111202
  5. DEXAMETHASONE [Suspect]
     Dates: start: 20110714, end: 20120613
  6. WARFARIN SODIUM [Concomitant]
     Dates: start: 20110620
  7. ESCITALOPRAM OXALATE [Concomitant]
     Dates: start: 20071017
  8. TESTOSTERONE [Concomitant]
     Dates: start: 20110620
  9. OMEPRAZOLE [Concomitant]
     Dates: start: 20110714
  10. ZOLPIDEM TARTRATE [Concomitant]
     Dates: start: 20110908
  11. TREANDA [Suspect]
     Dosage: DAYS 1-2
     Route: 042
     Dates: start: 20110908, end: 20111202
  12. BACTRIM [Concomitant]
     Dates: start: 20110714
  13. MORNIFLUMATE [Concomitant]
     Dates: start: 20071017
  14. EPOETIN ALFA [Concomitant]
     Dates: start: 20110620
  15. VICODIN [Concomitant]
     Dates: start: 20110620
  16. IBUPROFEN [Concomitant]
     Dates: start: 20110620

REACTIONS (1)
  - PNEUMONIA [None]
